FAERS Safety Report 9188616 (Version 1)
Quarter: 2013Q1

REPORT INFORMATION
  Report Type: Spontaneous
  Country: CH (occurrence: CH)
  Receive Date: 20130325
  Receipt Date: 20130325
  Transmission Date: 20140127
  Serious: Yes (Death)
  Sender: FDA-Public Use
  Company Number: CH-BAYER-2013-035585

PATIENT
  Age: 58 Year
  Sex: Female
  Weight: 49 kg

DRUGS (3)
  1. ASPIRIN CARDIO [Suspect]
     Dosage: 100 MG, QD
     Route: 048
     Dates: start: 20130128, end: 20130128
  2. ANGIOX [Suspect]
     Indication: ACUTE MYOCARDIAL INFARCTION
     Dosage: 37.5 MG, QD
     Route: 040
     Dates: start: 20130128, end: 20130128
  3. PRASUGREL [Suspect]
     Dosage: 10 MG, QD
     Route: 048
     Dates: start: 20130128, end: 20130128

REACTIONS (1)
  - Cerebellar haemorrhage [Fatal]
